FAERS Safety Report 7901116-5 (Version None)
Quarter: 2011Q4

REPORT INFORMATION
  Report Type: 
  Country: None (occurrence: None)
  Receive Date: 20111108
  Receipt Date: 20111103
  Transmission Date: 20120403
  Serious: Yes (Death)
  Sender: FDA-Public Use
  Company Number: CO-MILLENNIUM PHARMACEUTICALS, INC.-2011-05220

PATIENT

DRUGS (1)
  1. VELCADE [Suspect]
     Indication: B-CELL LYMPHOMA
     Dosage: 1.9 MG, UNK
     Route: 042
     Dates: start: 20110801, end: 20111001

REACTIONS (2)
  - B-CELL LYMPHOMA [None]
  - OFF LABEL USE [None]
